FAERS Safety Report 5204952-1 (Version None)
Quarter: 2007Q1

REPORT INFORMATION
  Report Type: 
  Country: None (occurrence: None)
  Receive Date: 20070110
  Receipt Date: 20060914
  Transmission Date: 20070707
  Serious: No
  Sender: FDA-Public Use
  Company Number: US-BRISTOL-MYERS SQUIBB COMPANY-13509021

PATIENT
  Age: 37 Year
  Sex: Male
  Weight: 100 kg

DRUGS (6)
  1. ABILIFY [Suspect]
     Indication: BIPOLAR DISORDER
     Dates: start: 20060701
  2. ABILIFY [Suspect]
     Indication: SCHIZOPHRENIA
     Dates: start: 20060701
  3. ZOLOFT [Concomitant]
  4. SYNTHROID [Concomitant]
  5. DEPAKOTE [Concomitant]
  6. ATIVAN [Concomitant]

REACTIONS (2)
  - INSOMNIA [None]
  - WEIGHT DECREASED [None]
